FAERS Safety Report 21705699 (Version 2)
Quarter: 2022Q4

REPORT INFORMATION
  Report Type: Report from Study
  Country: AU (occurrence: AU)
  Receive Date: 20221209
  Receipt Date: 20221227
  Transmission Date: 20230113
  Serious: Yes (Death, Hospitalization, Other)
  Sender: FDA-Public Use
  Company Number: AU-002147023-NVSC2022AU285736

PATIENT
  Sex: Female

DRUGS (5)
  1. TRAMETINIB [Suspect]
     Active Substance: TRAMETINIB
     Indication: Glioneuronal tumour
     Dosage: 2 MG, QD
     Route: 048
     Dates: start: 202105, end: 20220115
  2. DABRAFENIB [Suspect]
     Active Substance: DABRAFENIB
     Indication: Glioneuronal tumour
     Dosage: 150 MG, BID
     Route: 048
     Dates: start: 202105, end: 20220115
  3. CARBAMAZEPINE [Concomitant]
     Active Substance: CARBAMAZEPINE
     Indication: Product used for unknown indication
     Dosage: UNK
     Route: 065
  4. LEVETIRACETAM [Concomitant]
     Active Substance: LEVETIRACETAM
     Indication: Product used for unknown indication
     Dosage: UNK
     Route: 065
  5. DEXAMETHASONE [Concomitant]
     Active Substance: DEXAMETHASONE
     Indication: Product used for unknown indication
     Dosage: UNK
     Route: 065

REACTIONS (4)
  - Glioneuronal tumour [Fatal]
  - Malignant neoplasm progression [Fatal]
  - Hydrocephalus [Unknown]
  - Coma [Unknown]
